FAERS Safety Report 16188907 (Version 1)
Quarter: 2019Q2

REPORT INFORMATION
  Report Type: Spontaneous
  Country: DE (occurrence: JP)
  Receive Date: 20190412
  Receipt Date: 20190412
  Transmission Date: 20190711
  Serious: Yes (Death, Hospitalization, Other)
  Sender: FDA-Public Use
  Company Number: JP-B.I. PHARMACEUTICALS,INC./RIDGEFIELD-2019-BI-013965

PATIENT
  Age: 64 Year
  Sex: Male

DRUGS (3)
  1. OFEV [Suspect]
     Active Substance: NINTEDANIB
     Indication: IDIOPATHIC PULMONARY FIBROSIS
     Route: 065
     Dates: start: 201010
  2. OFEV [Suspect]
     Active Substance: NINTEDANIB
     Route: 065
     Dates: start: 201110
  3. PIRFENIDONE. [Concomitant]
     Active Substance: PIRFENIDONE
     Indication: IDIOPATHIC PULMONARY FIBROSIS
     Route: 042

REACTIONS (7)
  - Bacterial infection [Fatal]
  - Hypoxia [Unknown]
  - Idiopathic pulmonary fibrosis [Recovered/Resolved]
  - Dyspnoea [Unknown]
  - Computerised tomogram thorax abnormal [Unknown]
  - PO2 abnormal [Unknown]
  - Forced vital capacity decreased [Recovered/Resolved]
